FAERS Safety Report 14891010 (Version 1)
Quarter: 2018Q2

REPORT INFORMATION
  Report Type: Other
  Country: ES (occurrence: ES)
  Receive Date: 20180514
  Receipt Date: 20180514
  Transmission Date: 20180711
  Serious: Yes (Other)
  Sender: FDA-Public Use
  Company Number: ES-GLENMARK PHARMACEUTICALS-2018GMK035147

PATIENT

DRUGS (1)
  1. NEBIVOLOL. [Suspect]
     Active Substance: NEBIVOLOL
     Indication: MALIGNANT HYPERTENSION
     Dosage: 5 MG, OD
     Route: 048
     Dates: start: 2017, end: 20180409

REACTIONS (2)
  - Bronchitis [Recovered/Resolved]
  - Bronchospasm [Recovered/Resolved]

NARRATIVE: CASE EVENT DATE: 2018
